FAERS Safety Report 8218084-1 (Version None)
Quarter: 2012Q1

REPORT INFORMATION
  Report Type: 
  Country: None (occurrence: None)
  Receive Date: 20120319
  Receipt Date: 20120313
  Transmission Date: 20120608
  Serious: Yes (Death)
  Sender: FDA-Public Use
  Company Number: PH-ASTRAZENECA-2012SE16612

PATIENT
  Age: 31865 Day
  Sex: Male

DRUGS (12)
  1. ASPIRIN [Concomitant]
     Route: 048
  2. INSPRA [Concomitant]
     Indication: DIURETIC THERAPY
     Route: 048
  3. ALLOPURINOL [Concomitant]
     Indication: HYPERURICAEMIA
     Route: 048
  4. PREDUCTAL MR [Concomitant]
     Indication: ANGINA PECTORIS
     Route: 048
  5. FUROSEMIDE [Concomitant]
     Indication: CARDIAC FAILURE CONGESTIVE
     Route: 048
  6. EBRANTIL [Concomitant]
     Indication: HYPERTENSION
     Route: 048
  7. KORNAM [Concomitant]
     Indication: BENIGN PROSTATIC HYPERPLASIA
     Route: 048
  8. BISOPROLOL FUMARATE [Concomitant]
     Indication: ANGINA PECTORIS
     Route: 048
  9. STUDY PROCEDURE [Suspect]
  10. PLAVIX [Suspect]
     Indication: CORONARY ARTERY DISEASE
     Route: 048
     Dates: start: 20110930, end: 20120202
  11. DIGOXIN [Concomitant]
     Indication: CARDIAC FAILURE CHRONIC
     Route: 048
  12. EUPHYLLIN CRN [Concomitant]
     Indication: CHRONIC OBSTRUCTIVE PULMONARY DISEASE
     Route: 048

REACTIONS (1)
  - TRAUMATIC INTRACRANIAL HAEMORRHAGE [None]
